FAERS Safety Report 23682851 (Version 1)
Quarter: 2024Q1

REPORT INFORMATION
  Report Type: Spontaneous
  Country: US (occurrence: US)
  Receive Date: 20240328
  Receipt Date: 20240328
  Transmission Date: 20240410
  Serious: No
  Sender: FDA-Public Use
  Company Number: US-RECORDATI-2023004627

PATIENT

DRUGS (1)
  1. ISTURISA [Suspect]
     Active Substance: OSILODROSTAT PHOSPHATE
     Indication: Cushing^s syndrome
     Dosage: UNK, BID
     Route: 048
     Dates: start: 2023

REACTIONS (1)
  - Contusion [Recovering/Resolving]

NARRATIVE: CASE EVENT DATE: 20230701
